FAERS Safety Report 25994111 (Version 1)
Quarter: 2025Q4

REPORT INFORMATION
  Report Type: Spontaneous
  Country: JP (occurrence: JP)
  Receive Date: 20251104
  Receipt Date: 20251104
  Transmission Date: 20260118
  Serious: Yes (Other)
  Sender: ROCHE
  Company Number: JP-CHUGAI-2025034616

PATIENT
  Age: 57 Year
  Sex: Male
  Weight: 69 kg

DRUGS (17)
  1. ACTEMRA [Suspect]
     Active Substance: TOCILIZUMAB
     Indication: Castleman^s disease
     Dosage: 240 MILLIGRAM
     Route: 042
     Dates: start: 20230727, end: 20250418
  2. ACTEMRA [Suspect]
     Active Substance: TOCILIZUMAB
     Dosage: 240 MILLIGRAM
     Route: 042
     Dates: start: 20250519, end: 20250519
  3. ACTEMRA [Suspect]
     Active Substance: TOCILIZUMAB
     Dosage: 240 MILLIGRAM
     Route: 042
     Dates: start: 20250611, end: 20250611
  4. ACTEMRA [Suspect]
     Active Substance: TOCILIZUMAB
     Dosage: 240 MILLIGRAM
     Route: 042
     Dates: start: 20250725, end: 20250725
  5. ACTEMRA [Suspect]
     Active Substance: TOCILIZUMAB
     Dosage: 240 MILLIGRAM
     Route: 042
     Dates: start: 20250908, end: 20250908
  6. ACTEMRA [Suspect]
     Active Substance: TOCILIZUMAB
     Dosage: 240 MILLIGRAM
     Route: 042
     Dates: start: 20251020, end: 20251020
  7. PREDNISOLONE [Concomitant]
     Active Substance: PREDNISOLONE
     Indication: Castleman^s disease
     Dosage: 1 MILLIGRAM/KILOGRAM
     Route: 065
     Dates: start: 20230727
  8. RITUXIMAB [Concomitant]
     Active Substance: RITUXIMAB
     Indication: Castleman^s disease
     Dosage: UNK
     Route: 042
     Dates: start: 20230816, end: 20240429
  9. SULFAMETHOXAZOLE\TRIMETHOPRIM [Concomitant]
     Active Substance: SULFAMETHOXAZOLE\TRIMETHOPRIM
     Dosage: UNK
     Route: 048
     Dates: start: 20230808
  10. ZOVIRAX [Concomitant]
     Active Substance: ACYCLOVIR
     Dosage: UNK
     Route: 048
     Dates: start: 20230904
  11. CORTRIL [Concomitant]
     Active Substance: HYDROCORTISONE
     Dosage: UNK
     Route: 048
     Dates: start: 20230904
  12. POLARAMINE [Concomitant]
     Active Substance: DEXCHLORPHENIRAMINE MALEATE
     Indication: Premedication
     Dosage: UNK
     Route: 065
     Dates: start: 20250519
  13. POLARAMINE [Concomitant]
     Active Substance: DEXCHLORPHENIRAMINE MALEATE
     Dosage: UNK
     Route: 065
     Dates: start: 20250908
  14. ACETAMINOPHEN [Concomitant]
     Active Substance: ACETAMINOPHEN
     Indication: Premedication
     Dosage: UNK
     Route: 065
     Dates: start: 20250519
  15. ACETAMINOPHEN [Concomitant]
     Active Substance: ACETAMINOPHEN
     Dosage: UNK
     Route: 065
     Dates: start: 20250908
  16. SOLU-CORTEF [Concomitant]
     Active Substance: HYDROCORTISONE SODIUM SUCCINATE
     Indication: Premedication
     Dosage: UNK
     Route: 065
     Dates: start: 20250725
  17. SOLU-CORTEF [Concomitant]
     Active Substance: HYDROCORTISONE SODIUM SUCCINATE
     Dosage: UNK
     Route: 065
     Dates: start: 20250908

REACTIONS (7)
  - Bradycardia [Recovering/Resolving]
  - Infusion related reaction [Recovered/Resolved]
  - Cold sweat [Unknown]
  - Chest pain [Recovering/Resolving]
  - Flushing [Unknown]
  - Hot flush [Recovering/Resolving]
  - Off label use [Unknown]

NARRATIVE: CASE EVENT DATE: 20230727
